FAERS Safety Report 4673679-7 (Version None)
Quarter: 2005Q2

REPORT INFORMATION
  Report Type: 
  Country: None (occurrence: None)
  Receive Date: 20050523
  Receipt Date: 20050510
  Transmission Date: 20051028
  Serious: Yes (Other)
  Sender: FDA-Public Use
  Company Number: 2005048395

PATIENT
  Sex: Male
  Weight: 70.3075 kg

DRUGS (6)
  1. CELEBREX [Suspect]
     Indication: PAIN MANAGEMENT
     Dosage: 400 MG (100 MG, 1 IN 1 D) ORAL
     Route: 048
     Dates: start: 20040301
  2. IBUPROFEN [Concomitant]
  3. PANTOPRAZOLE [Concomitant]
  4. CLONAZEPAM [Concomitant]
  5. HYDROCODONE [Concomitant]
  6. ZOLOFT [Concomitant]

REACTIONS (5)
  - BACK PAIN [None]
  - DISEASE RECURRENCE [None]
  - DRUG INEFFECTIVE [None]
  - INTERVERTEBRAL DISC PROTRUSION [None]
  - PAIN IN EXTREMITY [None]
